FAERS Safety Report 8052705-1 (Version None)
Quarter: 2012Q1

REPORT INFORMATION
  Report Type: 
  Country: None (occurrence: None)
  Receive Date: 20120118
  Receipt Date: 20120118
  Transmission Date: 20120608
  Serious: Yes (Hospitalization)
  Sender: FDA-Public Use
  Company Number: None

PATIENT
  Age: 4 Day
  Sex: Female
  Weight: 1.105 kg

DRUGS (6)
  1. NYSTATIN [Concomitant]
     Route: 048
  2. GENTAMICIN [Concomitant]
     Route: 051
  3. INDOMETHACIN SODIUM [Suspect]
     Indication: PATENT DUCTUS ARTERIOSUS
     Dosage: 0.22MG X 2 DOSES
     Route: 042
     Dates: start: 20120103, end: 20120104
  4. AMPICILLIN [Concomitant]
  5. TPN [Concomitant]
     Route: 042
  6. FUROSEMIDE [Concomitant]
     Route: 042

REACTIONS (6)
  - URINE OUTPUT DECREASED [None]
  - WEIGHT DECREASE NEONATAL [None]
  - BLOOD UREA INCREASED [None]
  - DEHYDRATION [None]
  - BLOOD CREATINE INCREASED [None]
  - NEPHROPATHY [None]
